FAERS Safety Report 7142743-5 (Version None)
Quarter: 2010Q4

REPORT INFORMATION
  Report Type: 
  Country: None (occurrence: None)
  Receive Date: 20101207
  Receipt Date: 20101123
  Transmission Date: 20110411
  Serious: Yes (Hospitalization, Other)
  Sender: FDA-Public Use
  Company Number: PHHY2010AU79697

PATIENT
  Age: 57 Year
  Sex: Male

DRUGS (2)
  1. EXJADE [Suspect]
     Dosage: 1500 MG, QD
  2. EXJADE [Suspect]
     Dosage: 1000 MG, QD
     Dates: start: 20090601, end: 20090701

REACTIONS (2)
  - BONE MARROW DISORDER [None]
  - FEBRILE NEUTROPENIA [None]
